FAERS Safety Report 8494851-4 (Version None)
Quarter: 2012Q3

REPORT INFORMATION
  Report Type: 
  Country: None (occurrence: None)
  Receive Date: 20120709
  Receipt Date: 20120705
  Transmission Date: 20120928
  Serious: Yes (Hospitalization)
  Sender: FDA-Public Use
  Company Number: US-PFIZER INC-2012161899

PATIENT
  Sex: Female
  Weight: 72.562 kg

DRUGS (3)
  1. LIPITOR [Suspect]
     Indication: BLOOD CHOLESTEROL INCREASED
     Dosage: 20 MG, UNK
     Route: 048
     Dates: start: 20000101, end: 20120101
  2. ACETAMINOPHEN [Concomitant]
     Dosage: 25 MG, UNK
     Dates: start: 20120123
  3. ASPIRIN [Concomitant]
     Indication: CARDIOVASCULAR EVENT PROPHYLAXIS
     Dosage: 81MG DAILY IN MORNING

REACTIONS (1)
  - ANXIETY [None]
